FAERS Safety Report 9786873 (Version 2)
Quarter: 2013Q4

REPORT INFORMATION
  Report Type: Spontaneous
  Country: CA (occurrence: CA)
  Receive Date: 20131227
  Receipt Date: 20131227
  Transmission Date: 20140711
  Serious: Yes (Other)
  Sender: FDA-Public Use
  Company Number: CA-BAXTER-2013BAX050280

PATIENT
  Age: 56 Year
  Sex: Female

DRUGS (2)
  1. DIANEAL PD4 SOLUTION WITH 1.5% DEXTROSE AND 2.5 MEQ/L CALCIUM [Suspect]
     Indication: PERITONEAL DIALYSIS
     Route: 033
     Dates: start: 201310
  2. EXTRANEAL [Suspect]
     Indication: PERITONEAL DIALYSIS
     Route: 033
     Dates: start: 201310

REACTIONS (4)
  - Oral fungal infection [Recovering/Resolving]
  - Nasopharyngitis [Recovering/Resolving]
  - Aphonia [Unknown]
  - Diarrhoea [Recovering/Resolving]
